FAERS Safety Report 9003893 (Version 1)
Quarter: 2013Q1

REPORT INFORMATION
  Report Type: Spontaneous
  Country: US (occurrence: US)
  Receive Date: 20130108
  Receipt Date: 20130108
  Transmission Date: 20140127
  Serious: No
  Sender: FDA-Public Use
  Company Number: US-B.I. PHARMACEUTICALS,INC./RIDGEFIELD-2012-BI-03834BP

PATIENT
  Sex: Female

DRUGS (3)
  1. SPIRIVA [Suspect]
     Indication: CHRONIC OBSTRUCTIVE PULMONARY DISEASE
     Dosage: 18 MCG
     Route: 055
     Dates: start: 2010
  2. SPIRIVA [Suspect]
     Route: 048
     Dates: start: 2012, end: 2012
  3. SPIRIVA [Suspect]
     Route: 048
     Dates: start: 20121218, end: 20121218

REACTIONS (2)
  - Incorrect route of drug administration [Recovered/Resolved]
  - Incorrect route of drug administration [Recovered/Resolved]
